FAERS Safety Report 13869849 (Version 4)
Quarter: 2017Q4

REPORT INFORMATION
  Report Type: Report from Study
  Country: US (occurrence: US)
  Receive Date: 20170815
  Receipt Date: 20171019
  Transmission Date: 20180320
  Serious: Yes (Hospitalization, Other)
  Sender: FDA-Public Use
  Company Number: US-PFIZER INC-2017351444

PATIENT
  Age: 76 Year
  Sex: Male

DRUGS (3)
  1. SUTENT [Suspect]
     Active Substance: SUNITINIB MALATE
     Dosage: 25 MG, DAILY
     Route: 048
     Dates: start: 20170810
  2. SUTENT [Suspect]
     Active Substance: SUNITINIB MALATE
     Indication: RENAL CELL CARCINOMA
     Dosage: 50 MG, DAILY
     Route: 048
     Dates: start: 20170501, end: 20170630
  3. SUTENT [Suspect]
     Active Substance: SUNITINIB MALATE
     Dosage: 25 MG, DAILY
     Route: 048
     Dates: start: 20170501

REACTIONS (16)
  - Cardiac failure congestive [Unknown]
  - Palmar-plantar erythrodysaesthesia syndrome [Unknown]
  - Wound infection [Unknown]
  - Internal haemorrhage [Unknown]
  - Oesophagitis [Unknown]
  - Vomiting [Unknown]
  - Renal failure [Unknown]
  - Nausea [Unknown]
  - Decreased appetite [Unknown]
  - Constipation [Unknown]
  - Dysgeusia [Unknown]
  - Dyspnoea [Unknown]
  - Fatigue [Unknown]
  - Asthenia [Unknown]
  - Anaemia [Unknown]
  - Localised infection [Unknown]

NARRATIVE: CASE EVENT DATE: 2017
